FAERS Safety Report 25172794 (Version 1)
Quarter: 2025Q2

REPORT INFORMATION
  Report Type: Spontaneous
  Country: CN (occurrence: CN)
  Receive Date: 20250408
  Receipt Date: 20250408
  Transmission Date: 20250717
  Serious: Yes (Other)
  Sender: ROCHE
  Company Number: CN-ROCHE-10000247907

PATIENT
  Age: 36 Year
  Sex: Female
  Weight: 57.5 kg

DRUGS (1)
  1. BALOXAVIR MARBOXIL [Suspect]
     Active Substance: BALOXAVIR MARBOXIL
     Indication: Pyrexia
     Route: 048
     Dates: start: 20250213, end: 20250214

REACTIONS (4)
  - Hepatic function abnormal [Recovering/Resolving]
  - Intentional product misuse [Unknown]
  - Erythema [Recovering/Resolving]
  - Chromaturia [Recovering/Resolving]

NARRATIVE: CASE EVENT DATE: 20250213
